FAERS Safety Report 15172710 (Version 1)
Quarter: 2018Q3

REPORT INFORMATION
  Report Type: Spontaneous
  Country: JP (occurrence: JP)
  Receive Date: 20180720
  Receipt Date: 20180720
  Transmission Date: 20181010
  Serious: Yes (Other)
  Sender: FDA-Public Use
  Company Number: JP-MYLANLABS-2018M1054473

PATIENT
  Age: 76 Year
  Sex: Male

DRUGS (4)
  1. ACETYLSALICYLIC ACID [Suspect]
     Active Substance: ASPIRIN
     Indication: ANTIPLATELET THERAPY
     Dosage: LOADING DOSE DURING LEFT MAIN CROSSOVER STENTING
     Route: 065
  2. HEPARIN [Suspect]
     Active Substance: HEPARIN SODIUM
     Indication: ANTICOAGULANT THERAPY
     Dosage: 5000U DURING LEFT MAIN CROSSOVER STENTING
     Route: 042
  3. HEPARIN [Suspect]
     Active Substance: HEPARIN SODIUM
     Dosage: FOLLOWING PROCEDURE AND ONCE A WEEK WITH PC TRANSFUSION
     Route: 041
  4. ACETYLSALICYLIC ACID [Suspect]
     Active Substance: ASPIRIN
     Dosage: 100 MG/DAY, AND ADDITIONALLY 100MG/DAY ON THE DAY OF WEEKLY PLATELET CONCENTRATE TRANSFUSION DURI...
     Route: 048

REACTIONS (3)
  - Subdural haematoma [Recovered/Resolved]
  - Epistaxis [Recovered/Resolved]
  - Hemiparesis [Recovered/Resolved]
